FAERS Safety Report 7384577-2 (Version None)
Quarter: 2011Q1

REPORT INFORMATION
  Report Type: 
  Country: None (occurrence: None)
  Receive Date: 20110321
  Receipt Date: 20110307
  Transmission Date: 20110831
  Serious: Yes (Hospitalization)
  Sender: FDA-Public Use
  Company Number: 2011027848

PATIENT
  Age: 10 Year
  Sex: Male
  Weight: 35.3806 kg

DRUGS (22)
  1. VIVAGLOBIN [Suspect]
     Indication: SELECTIVE IGG SUBCLASS DEFICIENCY
     Dosage: (4.8 G 1X/WEEK, 4.8 G (30 ML ) WEEKLY VIA MULTIPLE SITES SUBCUTANEOUS)
     Route: 058
     Dates: start: 20110227
  2. VIVAGLOBIN [Suspect]
     Indication: SELECTIVE IGG SUBCLASS DEFICIENCY
     Dosage: (4.8 G 1X/WEEK, 4.8 G (30 ML ) WEEKLY VIA MULTIPLE SITES SUBCUTANEOUS)
     Route: 058
     Dates: start: 20110117
  3. VIVAGLOBIN [Suspect]
     Indication: SELECTIVE IGG SUBCLASS DEFICIENCY
     Dosage: (4.8 G 1X/WEEK, 4.8 G (30 ML ) WEEKLY VIA MULTIPLE SITES SUBCUTANEOUS)
     Route: 058
     Dates: start: 20110227
  4. TYLENOL (CHILD) (PARACETAMOL) [Concomitant]
  5. HYDROCORTONE [Concomitant]
  6. OMNICEF [Concomitant]
  7. ZYRTEC [Concomitant]
  8. PREVACID [Concomitant]
  9. SUCRALFATE [Concomitant]
  10. ZOFRAN [Concomitant]
  11. PREDNISONE [Concomitant]
  12. SYMBICORT [Concomitant]
  13. ATARAX [Concomitant]
  14. COLACE (DOCUSATE SODIUM) [Concomitant]
  15. PROBIOTIC CAP (LACTOBACILLUS ACIDOPHILUS) [Concomitant]
  16. VIVAGLOBIN [Suspect]
  17. DESONIDE [Concomitant]
  18. PERIACTIN [Concomitant]
  19. VICODIN [Concomitant]
  20. DULCOLAX [Concomitant]
  21. NASONEX [Concomitant]
  22. ALBUTEROL [Concomitant]

REACTIONS (7)
  - PETECHIAE [None]
  - ABDOMINAL PAIN UPPER [None]
  - DIARRHOEA [None]
  - NO THERAPEUTIC RESPONSE [None]
  - NAUSEA [None]
  - DECREASED APPETITE [None]
  - HEADACHE [None]
